FAERS Safety Report 20734155 (Version 2)
Quarter: 2022Q4

REPORT INFORMATION
  Report Type: Report from Study
  Country: US (occurrence: US)
  Receive Date: 20220421
  Receipt Date: 20221230
  Transmission Date: 20230112
  Serious: Yes (Other)
  Sender: FDA-Public Use
  Company Number: US-ABBVIE-22K-163-4365028-00

PATIENT
  Sex: Female

DRUGS (2)
  1. SKYRIZI [Suspect]
     Active Substance: RISANKIZUMAB-RZAA
     Indication: Psoriasis
     Route: 058
     Dates: start: 20220624
  2. SKYRIZI [Suspect]
     Active Substance: RISANKIZUMAB-RZAA
     Dosage: FIRST ADMINISTRATION DOSE DATE: 2022; LAST ADMINISTRATION DOSE DATE: 2022
     Route: 058

REACTIONS (4)
  - Osteitis deformans [Not Recovered/Not Resolved]
  - Bone disorder [Not Recovered/Not Resolved]
  - Femur fracture [Unknown]
  - Psoriasis [Unknown]
